FAERS Safety Report 19007597 (Version 1)
Quarter: 2021Q1

REPORT INFORMATION
  Report Type: Other
  Country: US (occurrence: US)
  Receive Date: 20210315
  Receipt Date: 20210315
  Transmission Date: 20210420
  Serious: Yes (Other)
  Sender: FDA-Public Use
  Company Number: US-ROCHE-2789318

PATIENT
  Age: 71 Year
  Sex: Male

DRUGS (13)
  1. TOCILIZUMAB. [Suspect]
     Active Substance: TOCILIZUMAB
     Indication: IMMUNE EFFECTOR CELL-ASSOCIATED NEUROTOXICITY SYNDROME
  2. IFOSFAMIDE. [Concomitant]
     Active Substance: IFOSFAMIDE
  3. ETOPOSIDE. [Concomitant]
     Active Substance: ETOPOSIDE
  4. FLUDARABINE [Concomitant]
     Active Substance: FLUDARABINE PHOSPHATE
  5. RITUXIMAB. [Suspect]
     Active Substance: RITUXIMAB
     Indication: RENAL TRANSPLANT
     Route: 065
  6. CYTARABINE. [Concomitant]
     Active Substance: CYTARABINE
  7. TOCILIZUMAB. [Suspect]
     Active Substance: TOCILIZUMAB
     Indication: CYTOKINE RELEASE SYNDROME
     Route: 065
  8. DOXORUBICIN [Concomitant]
     Active Substance: DOXORUBICIN
  9. PREDNISONE. [Concomitant]
     Active Substance: PREDNISONE
  10. CARBOPLATIN. [Concomitant]
     Active Substance: CARBOPLATIN
  11. AZATHIOPRINE. [Concomitant]
     Active Substance: AZATHIOPRINE
  12. TACROLIMUS. [Concomitant]
     Active Substance: TACROLIMUS
  13. OXALIPLATIN. [Concomitant]
     Active Substance: OXALIPLATIN

REACTIONS (2)
  - Bronchopulmonary aspergillosis [Unknown]
  - Enterococcal bacteraemia [Unknown]
